FAERS Safety Report 5928102-9 (Version None)
Quarter: 2008Q4

REPORT INFORMATION
  Report Type: 
  Country: None (occurrence: None)
  Receive Date: 20081023
  Receipt Date: 20081022
  Transmission Date: 20090506
  Serious: Yes (Other)
  Sender: FDA-Public Use
  Company Number: D0059117A

PATIENT
  Sex: Male

DRUGS (1)
  1. SULTANOL [Suspect]
     Route: 055

REACTIONS (1)
  - NEPHROLITHIASIS [None]
